FAERS Safety Report 10304522 (Version 1)
Quarter: 2014Q3

REPORT INFORMATION
  Report Type: Other
  Country: US (occurrence: US)
  Receive Date: 20140715
  Receipt Date: 20140715
  Transmission Date: 20150326
  Serious: Yes (Life-Threatening, Hospitalization)
  Sender: FDA-Public Use
  Company Number: US-LUPIN PHARMACEUTICALS INC.-2014-01284

PATIENT
  Age: 27 Year
  Sex: Male

DRUGS (1)
  1. QUETIAPINE [Suspect]
     Active Substance: QUETIAPINE
     Indication: SUICIDE ATTEMPT
     Route: 065

REACTIONS (6)
  - Coma blister [Recovering/Resolving]
  - Cellulitis [Recovering/Resolving]
  - Overdose [Unknown]
  - Rhabdomyolysis [Recovering/Resolving]
  - Coma [Recovering/Resolving]
  - Bacteraemia [Recovering/Resolving]
